FAERS Safety Report 12897063 (Version 1)
Quarter: 2016Q4

REPORT INFORMATION
  Report Type: Spontaneous
  Country: US (occurrence: US)
  Receive Date: 20161031
  Receipt Date: 20161031
  Transmission Date: 20170207
  Serious: Yes (Other)
  Sender: FDA-Public Use
  Company Number: US-PFIZER INC-2016497258

PATIENT
  Age: 57 Year
  Sex: Female

DRUGS (3)
  1. BACTRIM [Suspect]
     Active Substance: SULFAMETHOXAZOLE\TRIMETHOPRIM
     Dosage: UNK
  2. SUTENT [Suspect]
     Active Substance: SUNITINIB MALATE
     Indication: RENAL CANCER
     Dosage: 50 MG, CYCLIC (TAKE 1 CAPSULE BY MOUTH DAILY FOR 28 DAYS ON; THEN 14 DAYS OFF)
     Route: 048
  3. FLAGYL [Interacting]
     Active Substance: METRONIDAZOLE\METRONIDAZOLE HYDROCHLORIDE
     Dosage: UNK

REACTIONS (5)
  - Drug interaction [Unknown]
  - Stomatitis [Unknown]
  - Back pain [Unknown]
  - Renal haemorrhage [Unknown]
  - Swollen tongue [Unknown]

NARRATIVE: CASE EVENT DATE: 20160922
